FAERS Safety Report 9719486 (Version 2)
Quarter: 2014Q2

REPORT INFORMATION
  Report Type: Spontaneous
  Country: US (occurrence: US)
  Receive Date: 20131128
  Receipt Date: 20140502
  Transmission Date: 20141212
  Serious: Yes (Death)
  Sender: FDA-Public Use
  Company Number: US-BIOGENIDEC-2013BI112755

PATIENT
  Sex: Male

DRUGS (1)
  1. AVONEX [Suspect]
     Indication: MULTIPLE SCLEROSIS
     Route: 030
     Dates: start: 20050304

REACTIONS (2)
  - Mycotic aneurysm [Fatal]
  - Aortic aneurysm rupture [Fatal]
